FAERS Safety Report 5195565-9 (Version None)
Quarter: 2007Q1

REPORT INFORMATION
  Report Type: 
  Country: None (occurrence: None)
  Receive Date: 20070102
  Receipt Date: 20061222
  Transmission Date: 20070707
  Serious: Yes (Hospitalization)
  Sender: FDA-Public Use
  Company Number: NZ-ELI_LILLY_AND_COMPANY-NZ200612004269

PATIENT
  Sex: Female

DRUGS (4)
  1. ZYPREXA [Suspect]
  2. QUETIAPINE FUMARATE [Concomitant]
  3. ZOPLICONE [Concomitant]
  4. CLONAZEPAM [Concomitant]

REACTIONS (2)
  - ABORTION SPONTANEOUS [None]
  - DRUG EXPOSURE DURING PREGNANCY [None]
